FAERS Safety Report 25379231 (Version 3)
Quarter: 2025Q2

REPORT INFORMATION
  Report Type: Spontaneous
  Country: US (occurrence: US)
  Receive Date: 20250530
  Receipt Date: 20250610
  Transmission Date: 20250717
  Serious: No
  Sender: PFIZER
  Company Number: US-PFIZER INC-PV202500047712

PATIENT

DRUGS (3)
  1. ATROPINE SULFATE [Suspect]
     Active Substance: ATROPINE SULFATE
  2. ATROPINE SULFATE [Suspect]
     Active Substance: ATROPINE SULFATE
  3. ATROPINE SULFATE [Suspect]
     Active Substance: ATROPINE SULFATE

REACTIONS (3)
  - Device delivery system issue [Unknown]
  - Device issue [Unknown]
  - Device mechanical issue [Unknown]
